FAERS Safety Report 12374399 (Version 1)
Quarter: 2016Q2

REPORT INFORMATION
  Report Type: Spontaneous
  Country: TW (occurrence: TW)
  Receive Date: 20160517
  Receipt Date: 20160517
  Transmission Date: 20160815
  Serious: Yes (Hospitalization)
  Sender: FDA-Public Use
  Company Number: TW-ACCORD-040435

PATIENT
  Age: 60 Year
  Sex: Male

DRUGS (2)
  1. CLOPIDOGREL [Suspect]
     Active Substance: CLOPIDOGREL BISULFATE
     Indication: ANTIPLATELET THERAPY
     Dosage: ALSO RECEIVED HIGH DOSE CLOPIDOGREL 150 MG
  2. ASPIRIN. [Suspect]
     Active Substance: ASPIRIN
     Indication: ANTIPLATELET THERAPY

REACTIONS (5)
  - Cardiogenic shock [Recovering/Resolving]
  - Vascular stent thrombosis [Unknown]
  - Drug resistance [Unknown]
  - CYP2C19 polymorphism [Unknown]
  - Acute myocardial infarction [Recovering/Resolving]
